FAERS Safety Report 14236871 (Version 1)
Quarter: 2017Q4

REPORT INFORMATION
  Report Type: Spontaneous
  Country: US (occurrence: US)
  Receive Date: 20171129
  Receipt Date: 20171129
  Transmission Date: 20180321
  Serious: No
  Sender: FDA-Public Use
  Company Number: US-TEVA-369740USA

PATIENT
  Sex: Female

DRUGS (1)
  1. FUROSEMIDE. [Suspect]
     Active Substance: FUROSEMIDE

REACTIONS (3)
  - Skin disorder [Unknown]
  - Drug ineffective [Unknown]
  - Peripheral swelling [Unknown]
